FAERS Safety Report 7600242-8 (Version None)
Quarter: 2011Q3

REPORT INFORMATION
  Report Type: 
  Country: None (occurrence: None)
  Receive Date: 20110711
  Receipt Date: 20110629
  Transmission Date: 20111222
  Serious: Yes (Hospitalization, Other)
  Sender: FDA-Public Use
  Company Number: US-BAYER-2010-003131

PATIENT
  Age: 35 Year
  Sex: Female
  Weight: 70.295 kg

DRUGS (5)
  1. NSAID'S [Concomitant]
     Indication: MIGRAINE
     Dosage: UNK UNK, PRN
  2. YAZ [Suspect]
     Indication: PRODUCT USED FOR UNKNOWN INDICATION
  3. ASCORBIC ACID [Concomitant]
     Dosage: UNK UNK, QD
  4. YASMIN [Suspect]
     Indication: PRODUCT USED FOR UNKNOWN INDICATION
  5. LIPITOR [Concomitant]
     Indication: BLOOD CHOLESTEROL INCREASED
     Dosage: UNK
     Dates: start: 19900101

REACTIONS (3)
  - PAIN [None]
  - ANXIETY [None]
  - CEREBROVASCULAR ACCIDENT [None]
